FAERS Safety Report 9012205 (Version 2)
Quarter: 2013Q1

REPORT INFORMATION
  Report Type: Spontaneous
  Country: TR (occurrence: TR)
  Receive Date: 20130114
  Receipt Date: 20130115
  Transmission Date: 20140127
  Serious: Yes (Hospitalization)
  Sender: FDA-Public Use
  Company Number: TR-PFIZER INC-2013014393

PATIENT
  Sex: 0

DRUGS (1)
  1. CRIZOTINIB [Suspect]

REACTIONS (1)
  - Pulmonary toxicity [Recovering/Resolving]
